FAERS Safety Report 9298987 (Version 1)
Quarter: 2013Q2

REPORT INFORMATION
  Report Type: Spontaneous
  Country: US (occurrence: US)
  Receive Date: 20130520
  Receipt Date: 20130520
  Transmission Date: 20140414
  Serious: No
  Sender: FDA-Public Use
  Company Number: US-SANOFI-AVENTIS-2013SA029327

PATIENT
  Sex: Male

DRUGS (2)
  1. APIDRA [Suspect]
     Dosage: FREQUENCY -QHS DOSE:66 UNIT(S)
     Route: 058
  2. LANTUS [Suspect]

REACTIONS (2)
  - Malaise [Unknown]
  - Wrong drug administered [Unknown]
